FAERS Safety Report 9442612 (Version 1)
Quarter: 2013Q3

REPORT INFORMATION
  Report Type: Spontaneous
  Country: GB (occurrence: GB)
  Receive Date: 20130806
  Receipt Date: 20130806
  Transmission Date: 20140515
  Serious: Yes (Disabling, Other)
  Sender: FDA-Public Use
  Company Number: GB-PFIZER INC-2013223467

PATIENT
  Age: 40 Year
  Sex: Male
  Weight: 61 kg

DRUGS (4)
  1. SERTRALINE HCL [Suspect]
     Indication: DEPRESSION
     Dosage: 50 MG, 1X/DAY
     Route: 048
     Dates: start: 20130117
  2. SERTRALINE HCL [Suspect]
     Dosage: 100 MG, 1X/DAY
     Route: 048
     Dates: end: 20130619
  3. ZOPICLONE [Concomitant]
  4. TELFAST [Concomitant]

REACTIONS (3)
  - Ulnar nerve palsy [Recovering/Resolving]
  - Pain [Recovering/Resolving]
  - Nerve compression [Recovering/Resolving]
